FAERS Safety Report 13442988 (Version 3)
Quarter: 2017Q3

REPORT INFORMATION
  Report Type: Spontaneous
  Country: DK (occurrence: DK)
  Receive Date: 20170414
  Receipt Date: 20170915
  Transmission Date: 20171127
  Serious: Yes (Other)
  Sender: FDA-Public Use
  Company Number: DK-TEVA-756693ACC

PATIENT
  Age: 2 Decade
  Sex: Female

DRUGS (2)
  1. QUETIAPINE. [Suspect]
     Active Substance: QUETIAPINE
     Indication: PARAPHILIA
     Dosage: SINGLE DOSE
     Route: 048
  2. ALCOHOL. [Interacting]
     Active Substance: ALCOHOL
     Route: 048

REACTIONS (5)
  - Fatigue [Unknown]
  - Vomiting [Unknown]
  - Hypersomnia [Recovered/Resolved]
  - Victim of sexual abuse [Unknown]
  - Alcohol interaction [Unknown]
